FAERS Safety Report 25530505 (Version 1)
Quarter: 2025Q3

REPORT INFORMATION
  Report Type: Spontaneous
  Country: CA (occurrence: CA)
  Receive Date: 20250708
  Receipt Date: 20250708
  Transmission Date: 20251020
  Serious: Yes (Other)
  Sender: Vantive US Healthcare
  Company Number: CA-VANTIVE-2025VAN003077

PATIENT

DRUGS (1)
  1. REGIOCIT [Suspect]
     Active Substance: SODIUM CHLORIDE\SODIUM CITRATE
     Route: 033

REACTIONS (3)
  - Arrhythmia [Unknown]
  - Malaise [Unknown]
  - Hypocalcaemia [Unknown]
